FAERS Safety Report 5129213-0 (Version None)
Quarter: 2006Q3

REPORT INFORMATION
  Report Type: 
  Country: None (occurrence: None)
  Receive Date: 20060929
  Receipt Date: 20060921
  Transmission Date: 20061208
  Serious: Yes (Other)
  Sender: FDA-Public Use
  Company Number: GBWYE988221SEP06

PATIENT
  Age: 28 Year
  Sex: Male

DRUGS (1)
  1. REFACTO [Suspect]
     Dates: start: 20060401

REACTIONS (1)
  - FACTOR VIII INHIBITION [None]
